FAERS Safety Report 7527095-0 (Version None)
Quarter: 2011Q2

REPORT INFORMATION
  Report Type: 
  Country: None (occurrence: None)
  Receive Date: 20110606
  Receipt Date: 20110524
  Transmission Date: 20111010
  Serious: Yes (Other)
  Sender: FDA-Public Use
  Company Number: NL-MYLANLABS-2011S1010851

PATIENT
  Age: 45 Year
  Sex: Female
  Weight: 73 kg

DRUGS (3)
  1. METOPROLOL TARTRATE [Suspect]
     Route: 048
  2. METOPROLOL TARTRATE [Suspect]
     Indication: HYPERTENSION
     Dosage: 100 MG / DAG
     Route: 048
     Dates: start: 20110413
  3. ETHINYLESTRADIOL W/LEVONORGESTREL [Concomitant]
     Indication: PRODUCT USED FOR UNKNOWN INDICATION
     Dosage: A21
     Route: 048
     Dates: start: 20060101

REACTIONS (2)
  - EPISTAXIS [None]
  - METRORRHAGIA [None]
